FAERS Safety Report 7440225-4 (Version None)
Quarter: 2011Q2

REPORT INFORMATION
  Report Type: 
  Country: None (occurrence: None)
  Receive Date: 20110427
  Receipt Date: 20110420
  Transmission Date: 20111010
  Serious: Yes (Death, Other)
  Sender: FDA-Public Use
  Company Number: US-CELGENEUS-163-21880-11042761

PATIENT
  Age: 71 Year
  Sex: Male

DRUGS (7)
  1. OMEPRAZOLE [Concomitant]
     Route: 065
  2. REVLIMID [Suspect]
     Indication: MULTIPLE MYELOMA
     Dosage: 25 MILLIGRAM
     Route: 048
     Dates: start: 20100701, end: 20100801
  3. SENNA [Concomitant]
     Route: 065
  4. ZOFRAN [Concomitant]
     Route: 065
  5. CIPRO [Concomitant]
     Route: 065
  6. COLACE [Concomitant]
     Route: 065
  7. DECADRON [Concomitant]
     Route: 065

REACTIONS (2)
  - DEATH [None]
  - FULL BLOOD COUNT DECREASED [None]
